FAERS Safety Report 6066586-9 (Version None)
Quarter: 2009Q1

REPORT INFORMATION
  Report Type: 
  Country: None (occurrence: None)
  Receive Date: 20090205
  Receipt Date: 20090129
  Transmission Date: 20090719
  Serious: Yes (Disabling)
  Sender: FDA-Public Use
  Company Number: B0374607A

PATIENT
  Age: 66 Year
  Sex: Male
  Weight: 90.3 kg

DRUGS (3)
  1. DUTASTERIDE [Suspect]
     Indication: NEOPLASM PROPHYLAXIS
     Dosage: .5MG PER DAY
     Route: 048
     Dates: start: 20040707
  2. ALLOPURINOL [Concomitant]
  3. XATRAL [Concomitant]

REACTIONS (1)
  - AMNESIA [None]
